FAERS Safety Report 20921152 (Version 1)
Quarter: 2022Q2

REPORT INFORMATION
  Report Type: Other
  Country: US (occurrence: None)
  Receive Date: 20220606
  Receipt Date: 20220606
  Transmission Date: 20220721
  Serious: No
  Sender: FDA-Public Use
  Company Number: US-ROCHE-2937532

PATIENT
  Age: 34 Year
  Sex: Male
  Weight: 59.020 kg

DRUGS (18)
  1. OCREVUS [Suspect]
     Active Substance: OCRELIZUMAB
     Indication: Multiple sclerosis
     Dosage: 17/JUL/2021
     Route: 042
     Dates: start: 201801
  2. DIAZEPAM [Suspect]
     Active Substance: DIAZEPAM
     Indication: Muscle spasms
     Route: 048
  3. BACLOFEN [Concomitant]
     Active Substance: BACLOFEN
     Indication: Muscle spasms
  4. DULCOLAX (BISACODYL) [Concomitant]
     Active Substance: BISACODYL
     Route: 048
  5. CHOLECALCIFEROL [Concomitant]
     Active Substance: CHOLECALCIFEROL
     Dosage: 125 MCG
     Route: 048
  6. VALIUM [Concomitant]
     Active Substance: DIAZEPAM
     Route: 048
  7. CYMBALTA [Concomitant]
     Active Substance: DULOXETINE HYDROCHLORIDE
     Route: 048
  8. FERROUS SULFATE [Concomitant]
     Active Substance: FERROUS SULFATE
     Route: 048
  9. FOLVITE [Concomitant]
     Active Substance: FOLIC ACID
     Route: 048
  10. LIDODERM [Concomitant]
     Active Substance: LIDOCAINE
     Dosage: APPLY 1 PATCH TO SKIN ONCE A DAY. REMOVE PATCH AFTER 12 HOURS EVERY 24 HOURS PERIOD
  11. HIPREX (UNITED STATES) [Concomitant]
     Route: 048
  12. TRILEPTAL [Concomitant]
     Active Substance: OXCARBAZEPINE
     Route: 048
  13. PROTONIX [Concomitant]
     Active Substance: PANTOPRAZOLE SODIUM
     Route: 048
  14. LYRICA [Concomitant]
     Active Substance: PREGABALIN
     Route: 048
  15. FLOMAX [Concomitant]
     Active Substance: TAMSULOSIN HYDROCHLORIDE
     Route: 048
  16. LAMISIL [Concomitant]
     Active Substance: TERBINAFINE HYDROCHLORIDE
     Route: 048
  17. CYANOCOBALAMIN [Concomitant]
     Active Substance: CYANOCOBALAMIN
     Route: 048
  18. MULTIHANCE [Concomitant]
     Active Substance: GADOBENATE DIMEGLUMINE
     Route: 048

REACTIONS (27)
  - Wound [Not Recovered/Not Resolved]
  - Pain [Not Recovered/Not Resolved]
  - Hypokinesia [Not Recovered/Not Resolved]
  - Bedridden [Not Recovered/Not Resolved]
  - General physical health deterioration [Not Recovered/Not Resolved]
  - Red blood cell count decreased [Unknown]
  - Haemoglobin decreased [Unknown]
  - Haematocrit decreased [Unknown]
  - Mean cell haemoglobin increased [Unknown]
  - Blood chloride increased [Unknown]
  - Carbon dioxide decreased [Unknown]
  - Blood urea decreased [Unknown]
  - Blood creatinine decreased [Unknown]
  - Blood calcium decreased [Unknown]
  - Blood alkaline phosphatase decreased [Unknown]
  - Protein total decreased [Unknown]
  - Protein total increased [Unknown]
  - Gait disturbance [Unknown]
  - Joint ankylosis [Unknown]
  - Immobile [Unknown]
  - Vitamin B12 deficiency [Unknown]
  - Vitamin D deficiency [Unknown]
  - Stiff person syndrome [Unknown]
  - Cystitis [Unknown]
  - COVID-19 [Unknown]
  - Bacteriuria [Unknown]
  - Malnutrition [Unknown]

NARRATIVE: CASE EVENT DATE: 20201101
